FAERS Safety Report 8340440-1 (Version None)
Quarter: 2012Q2

REPORT INFORMATION
  Report Type: 
  Country: None (occurrence: None)
  Receive Date: 20120507
  Receipt Date: 20120507
  Transmission Date: 20120825
  Serious: Yes (Other)
  Sender: FDA-Public Use
  Company Number: None

PATIENT
  Age: 25 Year
  Sex: Female
  Weight: 109.31 kg

DRUGS (2)
  1. CELEXA [Concomitant]
     Route: 048
  2. CIPROFLOXACIN HCL [Suspect]
     Indication: KIDNEY INFECTION
     Dosage: |DOSAGETEXT: 2 TABLETS||STRENGTH: 250 MG||FREQ: TWICE A DAY||ROUTE: ORAL|
     Route: 048
     Dates: start: 20120426, end: 20120506

REACTIONS (17)
  - DECREASED APPETITE [None]
  - ASTHENIA [None]
  - CONFUSIONAL STATE [None]
  - HEART RATE INCREASED [None]
  - DRY MOUTH [None]
  - APHASIA [None]
  - NAUSEA [None]
  - CONSTIPATION [None]
  - SYNCOPE [None]
  - HYPERACUSIS [None]
  - HYPERAESTHESIA [None]
  - PARAESTHESIA [None]
  - INSOMNIA [None]
  - VISION BLURRED [None]
  - HEADACHE [None]
  - FUMBLING [None]
  - DYSPEPSIA [None]
